FAERS Safety Report 8791473 (Version 2)
Quarter: 2012Q4

REPORT INFORMATION
  Report Type: Spontaneous
  Country: US (occurrence: None)
  Receive Date: 20120912
  Receipt Date: 20120925
  Transmission Date: 20130627
  Serious: Yes (Other)
  Sender: FDA-Public Use
  Company Number: USA/USA/12/0025784

PATIENT
  Age: 57 Year
  Sex: Female

DRUGS (12)
  1. CLOPIDOGREL BISULFATE [Suspect]
     Indication: DRUG USE FOR UNKNOWN INDICATION
     Route: 048
     Dates: start: 20120823
  2. DULOXETINE HCL (DULOXETINE HYDROCHLORIDE) [Concomitant]
  3. MIRTAZAPINE (MIRTAZAPINE) [Concomitant]
  4. LEVOTHYROXINE (LEVOTHYROXINE) [Concomitant]
  5. AMLODIPINE BESYLATE (AMLODIPINE BESILATE) [Concomitant]
  6. BISOPROLOL (BISOPROLOL) [Concomitant]
  7. ASPIRIN (ACETYLSALICYLIC ACID) [Concomitant]
  8. LIPITOR (ATORVASTATIN CALCIUM) [Concomitant]
  9. GLIMEPIRIDE (GLIMEPIRIDE) [Concomitant]
  10. METFORMIN (METFORMIN HYDROCHLORIDE) [Concomitant]
  11. VANCOMYCIN (VANCOMYCIN) [Concomitant]
  12. ANGIOMAX (BIVALIRUDIN) [Concomitant]

REACTIONS (1)
  - Thrombosis in device [None]
